FAERS Safety Report 5663829-8 (Version None)
Quarter: 2008Q1

REPORT INFORMATION
  Report Type: 
  Country: None (occurrence: None)
  Receive Date: 20080310
  Receipt Date: 20080220
  Transmission Date: 20080703
  Serious: Yes (Other)
  Sender: FDA-Public Use
  Company Number: 2008RR-13201

PATIENT
  Age: 34 Year
  Sex: Female

DRUGS (1)
  1. FLUOXETINE [Suspect]
     Indication: DYSTHYMIC DISORDER
     Dosage: 20MG, QD

REACTIONS (5)
  - BREAST ATROPHY [None]
  - PARAESTHESIA [None]
  - RETRACTED NIPPLE [None]
  - SKIN WRINKLING [None]
  - WEIGHT DECREASED [None]
